FAERS Safety Report 17578332 (Version 2)
Quarter: 2020Q2

REPORT INFORMATION
  Report Type: Spontaneous
  Country: US (occurrence: US)
  Receive Date: 20200324
  Receipt Date: 20200519
  Transmission Date: 20200713
  Serious: No
  Sender: FDA-Public Use
  Company Number: US-PFIZER INC-2020121757

PATIENT

DRUGS (1)
  1. ADVIL LIQUI-GELS [Suspect]
     Active Substance: IBUPROFEN
     Indication: PYREXIA
     Dosage: 3 DF, ^3 PILLS EVERY 6 HOURS ^

REACTIONS (4)
  - Diarrhoea [Unknown]
  - Intentional overdose [Unknown]
  - Flatulence [Unknown]
  - Gastric disorder [Unknown]
